FAERS Safety Report 8679463 (Version 4)
Quarter: 2014Q2

REPORT INFORMATION
  Report Type: Report from Study
  Country: US (occurrence: US)
  Receive Date: 20120724
  Receipt Date: 20140407
  Transmission Date: 20141212
  Serious: Yes (Hospitalization)
  Sender: FDA-Public Use
  Company Number: US-NOVOPROD-345577

PATIENT
  Age: 58 Year
  Sex: Male
  Weight: 104.4 kg

DRUGS (4)
  1. LIRAGLUTIDE FLEXPEN [Suspect]
     Indication: TYPE 2 DIABETES MELLITUS
     Dosage: 1.8 MG, QD
     Route: 058
     Dates: start: 20110627, end: 20111025
  2. LIRAGLUTIDE FLEXPEN [Suspect]
     Dosage: 0.6 MG, QD
     Route: 058
     Dates: start: 20111220
  3. ZITHROMAX [Concomitant]
     Indication: DYSPNOEA
  4. NITROGLYCERIN [Concomitant]
     Route: 042

REACTIONS (1)
  - Angina pectoris [Not Recovered/Not Resolved]
